FAERS Safety Report 15561662 (Version 1)
Quarter: 2018Q4

REPORT INFORMATION
  Report Type: Spontaneous
  Country: AU (occurrence: AU)
  Receive Date: 20181029
  Receipt Date: 20181029
  Transmission Date: 20190205
  Serious: Yes (Hospitalization, Other)
  Sender: FDA-Public Use
  Company Number: AU-GLAXOSMITHKLINE-AU2018GSK193239

PATIENT
  Sex: Male

DRUGS (3)
  1. ZOLOFT [Suspect]
     Active Substance: SERTRALINE HYDROCHLORIDE
     Indication: PRODUCT USED FOR UNKNOWN INDICATION
     Dosage: UNK
     Dates: start: 2003
  2. TEMAZEPAM. [Suspect]
     Active Substance: TEMAZEPAM
     Indication: PRODUCT USED FOR UNKNOWN INDICATION
     Dosage: UNK
  3. TAFENOQUINE [Suspect]
     Active Substance: TAFENOQUINE
     Indication: PRODUCT USED FOR UNKNOWN INDICATION
     Dosage: UNK
     Dates: start: 2000

REACTIONS (23)
  - Psychotic symptom [Unknown]
  - Vomiting [Unknown]
  - Disturbance in attention [Not Recovered/Not Resolved]
  - Abnormal behaviour [Unknown]
  - Partner stress [Unknown]
  - Suicide attempt [Unknown]
  - Rash generalised [Unknown]
  - Diarrhoea [Unknown]
  - Depression [Unknown]
  - Depressed mood [Not Recovered/Not Resolved]
  - Frustration tolerance decreased [Not Recovered/Not Resolved]
  - Abdominal pain upper [Unknown]
  - Anger [Not Recovered/Not Resolved]
  - Major depression [Unknown]
  - Rash [Unknown]
  - Social avoidant behaviour [Not Recovered/Not Resolved]
  - Tremor [Not Recovered/Not Resolved]
  - Amnesia [Not Recovered/Not Resolved]
  - Insomnia [Not Recovered/Not Resolved]
  - Nightmare [Not Recovered/Not Resolved]
  - Abnormal dreams [Unknown]
  - Mood altered [Unknown]
  - Food poisoning [Unknown]

NARRATIVE: CASE EVENT DATE: 2003
